FAERS Safety Report 9865705 (Version 1)
Quarter: 2014Q1

REPORT INFORMATION
  Report Type: Spontaneous
  Country: US (occurrence: US)
  Receive Date: 20140203
  Receipt Date: 20140203
  Transmission Date: 20141002
  Serious: No
  Sender: FDA-Public Use
  Company Number: US-ALLERGAN-1307341US

PATIENT
  Sex: Male

DRUGS (5)
  1. RESTASIS [Suspect]
     Indication: DRY EYE
     Dosage: UNK
  2. RESTASIS [Suspect]
     Dosage: UNK
     Dates: start: 2012
  3. NATURAL TEARS [Concomitant]
     Indication: DRY EYE
     Dosage: UNK
     Route: 047
  4. FISH OIL [Concomitant]
     Indication: SUPPLEMENTATION THERAPY
     Dosage: UNK
  5. FLAXSEED OIL [Concomitant]
     Indication: SUPPLEMENTATION THERAPY
     Dosage: UNK

REACTIONS (2)
  - Instillation site pain [Unknown]
  - Eye irritation [Not Recovered/Not Resolved]
